FAERS Safety Report 13141690 (Version 4)
Quarter: 2017Q1

REPORT INFORMATION
  Report Type: Spontaneous
  Country: US (occurrence: US)
  Receive Date: 20170123
  Receipt Date: 20170227
  Transmission Date: 20170428
  Serious: Yes (Death, Hospitalization, Other)
  Sender: FDA-Public Use
  Company Number: US-CELGENEUS-USA-2016083761

PATIENT
  Age: 73 Year
  Sex: Male
  Weight: 69.37 kg

DRUGS (6)
  1. REVLIMID [Suspect]
     Active Substance: LENALIDOMIDE
     Indication: MYELODYSPLASTIC SYNDROME
     Dosage: 5 MILLIGRAM
     Route: 048
     Dates: start: 20160616
  2. FLUCONAZOLE. [Concomitant]
     Active Substance: FLUCONAZOLE
     Indication: NEUTROPENIA
     Dosage: 400 MILLIGRAM
     Route: 048
     Dates: start: 20150130, end: 20160829
  3. ACYCLOVIR. [Concomitant]
     Active Substance: ACYCLOVIR
     Indication: NEUTROPENIA
     Dosage: 1600 MILLIGRAM
     Route: 048
     Dates: start: 20150130, end: 20160829
  4. EXJADE [Concomitant]
     Active Substance: DEFERASIROX
     Indication: IRON OVERLOAD
     Dosage: 1500 MILLIGRAM
     Route: 048
     Dates: start: 20150527, end: 20160829
  5. CIPROFLOXACIN. [Concomitant]
     Active Substance: CIPROFLOXACIN
     Indication: NEUTROPENIA
     Dosage: 1000 MILLIGRAM
     Route: 048
     Dates: start: 20150130, end: 20160829
  6. REVLIMID [Suspect]
     Active Substance: LENALIDOMIDE
     Dosage: 7.5 MILLIGRAM
     Route: 048
     Dates: start: 201607, end: 20160810

REACTIONS (3)
  - Asthenia [Not Recovered/Not Resolved]
  - Bone marrow failure [Recovered/Resolved]
  - Urinary tract infection [Fatal]

NARRATIVE: CASE EVENT DATE: 20160729
